FAERS Safety Report 8021417-2 (Version None)
Quarter: 2012Q1

REPORT INFORMATION
  Report Type: 
  Country: None (occurrence: None)
  Receive Date: 20120104
  Receipt Date: 20111226
  Transmission Date: 20120608
  Serious: Yes (Other)
  Sender: FDA-Public Use
  Company Number: BE-BAYER-2011-036557

PATIENT
  Sex: Female

DRUGS (1)
  1. MIRENA [Suspect]
     Dosage: UNK
     Dates: start: 20050321, end: 20110426

REACTIONS (3)
  - DEVICE DISLOCATION [None]
  - PRODUCT SHAPE ISSUE [None]
  - GRANULOMA [None]
